FAERS Safety Report 10662142 (Version 2)
Quarter: 2014Q4

REPORT INFORMATION
  Report Type: Spontaneous
  Country: BR (occurrence: BR)
  Receive Date: 20141218
  Receipt Date: 20141229
  Transmission Date: 20150529
  Serious: Yes (Other)
  Sender: FDA-Public Use
  Company Number: BR-BAYER-2014-185261

PATIENT
  Age: 86 Year
  Sex: Female

DRUGS (1)
  1. PROMIRA [Suspect]
     Active Substance: MOXIFLOXACIN
     Indication: PRODUCT USED FOR UNKNOWN INDICATION
     Dosage: 400 MG, QD
     Route: 048
     Dates: start: 20141208, end: 20141210

REACTIONS (13)
  - Malaise [Recovered/Resolved]
  - Urinary retention [Recovered/Resolved]
  - Headache [Recovered/Resolved]
  - Heart rate increased [Recovered/Resolved]
  - Dizziness [Recovered/Resolved]
  - Respiratory rate decreased [Recovered/Resolved]
  - Anxiety [None]
  - Fatigue [Recovered/Resolved]
  - Malaise [Recovered/Resolved]
  - Pulmonary pain [Recovered/Resolved]
  - Mouth swelling [Recovered/Resolved]
  - Angina pectoris [Recovered/Resolved]
  - Abdominal pain upper [Recovered/Resolved]

NARRATIVE: CASE EVENT DATE: 20141209
